FAERS Safety Report 5345709-0 (Version None)
Quarter: 2007Q2

REPORT INFORMATION
  Report Type: 
  Country: None (occurrence: None)
  Receive Date: 20070601
  Receipt Date: 20070522
  Transmission Date: 20071010
  Serious: Yes (Life-Threatening, Hospitalization, Other)
  Sender: FDA-Public Use
  Company Number: VER_00061_2007

PATIENT
  Sex: Female

DRUGS (1)
  1. EPINEPHRINE [Suspect]
     Indication: ANAPHYLACTIC REACTION
     Dosage: 0.3 MG PRN INTRAMUSCULAR
     Route: 030

REACTIONS (3)
  - ANAPHYLACTIC REACTION [None]
  - DEVICE MALFUNCTION [None]
  - INJECTION SITE BRUISING [None]
